FAERS Safety Report 14404117 (Version 1)
Quarter: 2018Q1

REPORT INFORMATION
  Report Type: Spontaneous
  Country: US (occurrence: US)
  Receive Date: 20180117
  Receipt Date: 20180117
  Transmission Date: 20180509
  Serious: No
  Sender: FDA-Public Use
  Company Number: US-PFIZER INC-2018013825

PATIENT
  Age: 64 Year
  Sex: Female

DRUGS (10)
  1. OXYCODONE HYDROCHLORIDE. [Concomitant]
     Active Substance: OXYCODONE HYDROCHLORIDE
     Dosage: 5 MG, AS NEEDED
     Route: 048
  2. TURMERIC [Concomitant]
     Active Substance: HERBALS\TURMERIC
     Dosage: 1000 MG, 2X/DAY
     Route: 048
  3. DOXORUBICIN HCL [Suspect]
     Active Substance: DOXORUBICIN HYDROCHLORIDE
     Indication: HEPATOCELLULAR CARCINOMA
  4. DOXORUBICIN HCL [Suspect]
     Active Substance: DOXORUBICIN HYDROCHLORIDE
     Indication: HEPATOBILIARY CANCER
  5. ACTONEL [Concomitant]
     Active Substance: RISEDRONATE SODIUM
     Dosage: 35 MG, UNK
     Route: 048
  6. ALDACTONE [Concomitant]
     Active Substance: SPIRONOLACTONE
     Dosage: 100 MG, DAILY
     Route: 048
  7. DOXORUBICIN HCL [Suspect]
     Active Substance: DOXORUBICIN HYDROCHLORIDE
     Indication: ADENOCARCINOMA PANCREAS
  8. ZOFRAN [Concomitant]
     Active Substance: ONDANSETRON HYDROCHLORIDE
     Indication: NAUSEA
     Dosage: 8 MG, DAILY
     Route: 048
  9. DOXORUBICIN HCL [Suspect]
     Active Substance: DOXORUBICIN HYDROCHLORIDE
     Indication: ADENOCARCINOMA
     Dosage: UNK
     Dates: start: 20170922
  10. CARVEDILOL. [Concomitant]
     Active Substance: CARVEDILOL
     Dosage: 3.125 MG, DAILY
     Route: 048

REACTIONS (8)
  - Decreased appetite [Recovered/Resolved]
  - Application site vasculitis [Recovering/Resolving]
  - Weight decreased [Unknown]
  - Dyspepsia [Recovered/Resolved]
  - Ear pain [Unknown]
  - Depressed mood [Unknown]
  - Vomiting [Recovered/Resolved]
  - Neoplasm progression [Unknown]
